FAERS Safety Report 18509028 (Version 1)
Quarter: 2020Q4

REPORT INFORMATION
  Report Type: Spontaneous
  Country: US (occurrence: US)
  Receive Date: 20201117
  Receipt Date: 20201117
  Transmission Date: 20210114
  Serious: Yes (Other)
  Sender: FDA-Public Use
  Company Number: US-AUROBINDO-AUR-APL-2020-056168

PATIENT
  Age: 1 Month
  Sex: Female

DRUGS (2)
  1. ROCURONIUM BROMIDE. [Suspect]
     Active Substance: ROCURONIUM BROMIDE
     Indication: PATENT DUCTUS ARTERIOSUS REPAIR
     Dosage: UNK
     Route: 065
  2. CISATRACURIUM. [Concomitant]
     Active Substance: CISATRACURIUM
     Indication: PRODUCT USED FOR UNKNOWN INDICATION
     Dosage: UNK
     Route: 065

REACTIONS (7)
  - Bradycardia [Unknown]
  - Hypoxia [Unknown]
  - Bronchospasm [Unknown]
  - Hypotension [Unknown]
  - Drug hypersensitivity [Unknown]
  - Hypoventilation [Unknown]
  - Anaphylactic reaction [Unknown]
